FAERS Safety Report 11692704 (Version 1)
Quarter: 2015Q4

REPORT INFORMATION
  Report Type: Spontaneous
  Country: US (occurrence: US)
  Receive Date: 20151103
  Receipt Date: 20151103
  Transmission Date: 20160304
  Serious: Yes (Hospitalization, Other)
  Sender: FDA-Public Use
  Company Number: US-AMGEN-USASP2015114380

PATIENT
  Sex: Female

DRUGS (28)
  1. ALBUTEROL                          /00139501/ [Concomitant]
     Active Substance: ALBUTEROL
     Dosage: 2 PUFFS, (90 MCG)Q 6HRS
  2. BACITRACIN. [Concomitant]
     Active Substance: BACITRACIN
  3. VITAMIN D                          /00107901/ [Concomitant]
     Active Substance: ERGOCALCIFEROL
  4. XGEVA [Suspect]
     Active Substance: DENOSUMAB
     Indication: PRODUCT USED FOR UNKNOWN INDICATION
     Dosage: 120 MG, QD
     Route: 058
  5. AFINITOR [Concomitant]
     Active Substance: EVEROLIMUS
     Dosage: 10 MG, QD
     Route: 048
  6. PREDNISONE. [Concomitant]
     Active Substance: PREDNISONE
     Dosage: 5 MG, QD
     Route: 048
  7. RESTORIL [Concomitant]
     Active Substance: TEMAZEPAM
     Dosage: 15 MG, AS NECESSARY AT BED TIME
     Route: 048
  8. FLUTICASONE W/SALMETEROL [Concomitant]
     Active Substance: FLUTICASONE PROPIONATE\SALMETEROL XINAFOATE
     Dosage: AS DIRECTED
  9. FOLIC ACID. [Concomitant]
     Active Substance: FOLIC ACID
     Dosage: 1 MG, QD
     Route: 048
  10. FEMARA [Concomitant]
     Active Substance: LETROZOLE
  11. ZOMETA [Concomitant]
     Active Substance: ZOLEDRONIC ACID
  12. ADVAIR HFA [Concomitant]
     Active Substance: FLUTICASONE PROPIONATE\SALMETEROL XINAFOATE
     Dosage: 1 PUFF (250-50 MCG)
  13. LOTEMAX [Concomitant]
     Active Substance: LOTEPREDNOL ETABONATE
     Dosage: AS DIRECTED
  14. CALCIUM [Concomitant]
     Active Substance: CALCIUM
  15. NORCO [Concomitant]
     Active Substance: ACETAMINOPHEN\HYDROCODONE BITARTRATE
     Dosage: 10-325 MG (Q 4HRS)
     Route: 048
  16. LASIX [Concomitant]
     Active Substance: FUROSEMIDE
     Dosage: 40 MG, QD
     Route: 048
  17. MULTIVITAMINS [Concomitant]
     Active Substance: VITAMINS
     Dosage: UNK UNK, QD
     Route: 048
  18. OSCAL D [Concomitant]
     Active Substance: CALCIUM CARBONATE\CHOLECALCIFEROL
     Dosage: AS DIRECTED
     Route: 048
  19. PLAVIX [Concomitant]
     Active Substance: CLOPIDOGREL BISULFATE
     Dosage: 75 MG, QD
     Route: 048
  20. GABAPENTIN. [Concomitant]
     Active Substance: GABAPENTIN
     Dosage: 300 MG, UNK
     Route: 048
  21. VITAMIN B3 [Concomitant]
     Active Substance: NIACIN
     Dosage: AS DIRECTED
     Route: 048
  22. AROMASIN [Suspect]
     Active Substance: EXEMESTANE
     Indication: BREAST CANCER
     Dosage: 25 MG, QD
     Route: 048
     Dates: start: 20140112
  23. ARAVA [Concomitant]
     Active Substance: LEFLUNOMIDE
     Dosage: 10 MG, QD
     Route: 048
  24. INSULIN [Concomitant]
     Active Substance: INSULIN NOS
     Dosage: 70/30 20 U SUB AC PM AND 35 UNITS AC AM
     Route: 058
  25. CARVEDILOL. [Concomitant]
     Active Substance: CARVEDILOL
     Dosage: 625 MG, BID
     Route: 048
  26. LOTRISONE [Concomitant]
     Active Substance: BETAMETHASONE DIPROPIONATE\CLOTRIMAZOLE
     Dosage: UNK UNK, AS NECESSARY
     Route: 061
  27. METHOTREXATE [Concomitant]
     Active Substance: METHOTREXATE
     Dosage: 2.5 MG, Q 7DAYS
     Route: 048
  28. POTASSIUM CHLORIDE. [Concomitant]
     Active Substance: POTASSIUM CHLORIDE
     Dosage: 60 MEQ, QD
     Route: 048

REACTIONS (48)
  - Diabetes mellitus [Unknown]
  - Metastatic neoplasm [Unknown]
  - Gastric operation [Unknown]
  - Peripheral venous disease [Unknown]
  - Fatigue [Unknown]
  - Dry gangrene [Unknown]
  - Cholecystectomy [Unknown]
  - Breast cancer metastatic [Unknown]
  - Anaemia [Unknown]
  - Phlebosclerosis [Unknown]
  - Localised infection [Unknown]
  - Atelectasis [Unknown]
  - Rheumatoid arthritis [Unknown]
  - Metastases to bone [Unknown]
  - Inflammation [Unknown]
  - Lymphangiectasia intestinal [Unknown]
  - Colon adenoma [Unknown]
  - Hypertension [Unknown]
  - Intervertebral disc degeneration [Unknown]
  - Duodenal polyp [Unknown]
  - Joint range of motion decreased [Unknown]
  - Diverticulum intestinal [Unknown]
  - Arthralgia [Unknown]
  - Gangrene [Unknown]
  - Rectal ulcer [Unknown]
  - Gastric ulcer [Unknown]
  - Pulmonary mass [Unknown]
  - Malabsorption [Unknown]
  - Bedridden [Unknown]
  - Back pain [Unknown]
  - Chronic kidney disease [Unknown]
  - Tumour marker decreased [Unknown]
  - Reactive gastropathy [Unknown]
  - Haemorrhoids [Unknown]
  - Bronchial hyperreactivity [Unknown]
  - Lumbar radiculopathy [Unknown]
  - Skin ulcer [Unknown]
  - Peripheral arterial occlusive disease [Unknown]
  - Dysphagia [Unknown]
  - Musculoskeletal disorder [Unknown]
  - Atherectomy [Unknown]
  - Femoral neck fracture [Unknown]
  - Groin pain [Unknown]
  - Varicose vein [Unknown]
  - Bone lesion [Unknown]
  - Appendicectomy [Unknown]
  - Anaemia of malignant disease [Unknown]
  - Lymphadenopathy [Unknown]
